FAERS Safety Report 8383233 (Version 5)
Quarter: 2013Q2

REPORT INFORMATION
  Report Type: Spontaneous
  Country: BE (occurrence: BE)
  Receive Date: 20120130
  Receipt Date: 20130613
  Transmission Date: 20140414
  Serious: Yes (Other)
  Sender: FDA-Public Use
  Company Number: BE-PFIZER INC-2012019998

PATIENT
  Age: 61 Year
  Sex: Male

DRUGS (11)
  1. MEDROL [Suspect]
     Indication: RETROPERITONEAL FIBROSIS
     Dosage: 32 MG, 2X/DAY
     Route: 048
     Dates: start: 19960531, end: 19960619
  2. MEDROL [Suspect]
     Dosage: 32 MG, 1X/DAY
     Route: 048
     Dates: start: 19960620, end: 19960719
  3. MEDROL [Suspect]
     Dosage: 24 MG, 1X/DAY
     Route: 048
     Dates: start: 19960720, end: 19960831
  4. MEDROL [Suspect]
     Dosage: 16 MG, 1X/DAY
     Route: 048
     Dates: start: 19960901, end: 19960930
  5. MEDROL [Suspect]
     Dosage: 12 MG, 1X/DAY
     Route: 048
     Dates: start: 19961001, end: 19961030
  6. MEDROL [Suspect]
     Dosage: 8 MG, 1X/DAY
     Route: 048
     Dates: start: 19961101, end: 19961231
  7. MEDROL [Suspect]
     Dosage: 6 MG, 1X/DAY
     Route: 048
     Dates: start: 19970101, end: 19970228
  8. MEDROL [Suspect]
     Dosage: 4 MG, 1X/DAY
     Dates: start: 19970301, end: 19970629
  9. MEDROL [Suspect]
     Dosage: 4 MG, EVERY OTHER DAY
     Route: 048
     Dates: start: 19970630, end: 19970831
  10. MEDROL [Suspect]
     Dosage: 4 MG, EVERY 3 DAYS
     Route: 048
     Dates: start: 19970901, end: 19971030
  11. MEDROL [Suspect]
     Dosage: 4 MG, EVERY 4 DAYS
     Route: 048
     Dates: start: 19971101, end: 19980403

REACTIONS (18)
  - Nephrectomy [Unknown]
  - Diabetes mellitus [Unknown]
  - Gastrointestinal ulcer [Unknown]
  - Thyroid disorder [Unknown]
  - Depression [Unknown]
  - Intraocular pressure increased [Unknown]
  - Sleep disorder [Unknown]
  - Dry mouth [Unknown]
  - Panic reaction [Unknown]
  - Visual acuity reduced [Recovering/Resolving]
  - Muscle disorder [Unknown]
  - Respiratory disorder [Unknown]
  - Tinnitus [Unknown]
  - Bone pain [Not Recovered/Not Resolved]
  - Disturbance in attention [Unknown]
  - Back disorder [Unknown]
  - Psoriasis [Unknown]
  - Off label use [Unknown]
